FAERS Safety Report 11717986 (Version 1)
Quarter: 2015Q4

REPORT INFORMATION
  Report Type: Spontaneous
  Country: US (occurrence: None)
  Receive Date: 20151109
  Receipt Date: 20151109
  Transmission Date: 20160304
  Serious: Yes (Hospitalization)
  Sender: FDA-Public Use
  Company Number: None

PATIENT
  Sex: Male
  Weight: 83.69 kg

DRUGS (4)
  1. OXALIPLATIN. [Concomitant]
     Active Substance: OXALIPLATIN
  2. FOLFOX-ABRAXANE [Suspect]
     Active Substance: FLUOROURACIL\LEUCOVORIN CALCIUM\OXALIPLATIN\PACLITAXEL
     Indication: PANCREATIC CARCINOMA
  3. LEUCOVORIN. [Concomitant]
     Active Substance: LEUCOVORIN
  4. 5 FU [Concomitant]
     Active Substance: FLUOROURACIL

REACTIONS (12)
  - Dyspnoea [None]
  - Pneumonitis [None]
  - Respiratory failure [None]
  - Platelet count decreased [None]
  - Fatigue [None]
  - Emphysema [None]
  - Opportunistic infection [None]
  - Neuropathy peripheral [None]
  - Haemoptysis [None]
  - Viral infection [None]
  - Pneumonia [None]
  - Cough [None]

NARRATIVE: CASE EVENT DATE: 20151102
